FAERS Safety Report 6072226-5 (Version None)
Quarter: 2009Q1

REPORT INFORMATION
  Report Type: 
  Country: None (occurrence: None)
  Receive Date: 20090210
  Receipt Date: 20090128
  Transmission Date: 20090719
  Serious: Yes (Hospitalization)
  Sender: FDA-Public Use
  Company Number: FR-GENENTECH-276319

PATIENT
  Sex: Male

DRUGS (2)
  1. LUCENTIS [Suspect]
     Indication: MACULAR DEGENERATION
     Dosage: UNK
     Route: 031
     Dates: start: 20080601
  2. PLAVIX [Concomitant]
     Indication: DRUG USE FOR UNKNOWN INDICATION

REACTIONS (2)
  - CEREBROVASCULAR ACCIDENT [None]
  - VISUAL IMPAIRMENT [None]
